FAERS Safety Report 6556931-X (Version None)
Quarter: 2010Q1

REPORT INFORMATION
  Report Type: 
  Country: None (occurrence: None)
  Receive Date: 20100126
  Receipt Date: 20100114
  Transmission Date: 20100710
  Serious: Yes (Hospitalization)
  Sender: FDA-Public Use
  Company Number: 230032J10BRA

PATIENT
  Age: 52 Year
  Sex: Male

DRUGS (3)
  1. REBIF [Suspect]
     Indication: RELAPSING-REMITTING MULTIPLE SCLEROSIS
     Dosage: 44 MCG, 3 IN 1 WEEKS, 44 MCG
     Dates: start: 20070701, end: 20080101
  2. REBIF [Suspect]
     Indication: RELAPSING-REMITTING MULTIPLE SCLEROSIS
     Dosage: 44 MCG, 3 IN 1 WEEKS, 44 MCG
     Dates: start: 20080601
  3. SERTRALINE HCL [Concomitant]

REACTIONS (5)
  - EATING DISORDER [None]
  - ERECTILE DYSFUNCTION [None]
  - LOWER LIMB FRACTURE [None]
  - SPEECH DISORDER [None]
  - URINARY TRACT INFECTION [None]
